FAERS Safety Report 23679587 (Version 1)
Quarter: 2024Q1

REPORT INFORMATION
  Report Type: Report from Study
  Country: US (occurrence: US)
  Receive Date: 20240327
  Receipt Date: 20240327
  Transmission Date: 20240410
  Serious: Yes (Other)
  Sender: FDA-Public Use
  Company Number: US-ABBVIE-5652380

PATIENT
  Sex: Female

DRUGS (1)
  1. HUMIRA [Suspect]
     Active Substance: ADALIMUMAB
     Indication: Hidradenitis
     Dosage: FORM STRENGTH: 40 MILLIGRAM?CITRATE FREE
     Route: 058
     Dates: start: 20240206

REACTIONS (7)
  - Systemic lupus erythematosus [Unknown]
  - COVID-19 pneumonia [Not Recovered/Not Resolved]
  - Productive cough [Unknown]
  - Pain [Not Recovered/Not Resolved]
  - Cough [Not Recovered/Not Resolved]
  - Pyrexia [Not Recovered/Not Resolved]
  - Mucosal discolouration [Unknown]

NARRATIVE: CASE EVENT DATE: 20240101
